FAERS Safety Report 15462070 (Version 3)
Quarter: 2018Q4

REPORT INFORMATION
  Report Type: Spontaneous
  Country: CH (occurrence: CH)
  Receive Date: 20181004
  Receipt Date: 20181019
  Transmission Date: 20190204
  Serious: Yes (Death, Hospitalization, Other)
  Sender: FDA-Public Use
  Company Number: CH-ABBVIE-18K-151-2508284-00

PATIENT
  Sex: Male

DRUGS (1)
  1. VENETOCLAX. [Suspect]
     Active Substance: VENETOCLAX
     Indication: CHRONIC LYMPHOCYTIC LEUKAEMIA
     Route: 048
     Dates: start: 201807, end: 20180907

REACTIONS (6)
  - Dyspnoea [Fatal]
  - Pneumonia [Fatal]
  - Respiratory distress [Unknown]
  - Bone marrow necrosis [Fatal]
  - Pain [Unknown]
  - Infection [Fatal]
